FAERS Safety Report 9802856 (Version 1)
Quarter: 2014Q1

REPORT INFORMATION
  Report Type: Spontaneous
  Country: DE (occurrence: None)
  Receive Date: 20140102
  Receipt Date: 20140102
  Transmission Date: 20141002
  Serious: Yes (Hospitalization)
  Sender: FDA-Public Use
  Company Number: 1312-1639

PATIENT
  Age: 73 Year
  Sex: Female

DRUGS (1)
  1. EYLEA (AFLIBERCEPT) (SOLUTION FOR INJECTION) (AFLIBERCEPT) [Suspect]
     Indication: AGE-RELATED MACULAR DEGENERATION
     Dosage: 40 MILLIGRAM/MILLILITERS, 1 IN 2 M, INTRAOCULAR
     Route: 031
     Dates: start: 20131126

REACTIONS (2)
  - Cerebrovascular accident [None]
  - Transient ischaemic attack [None]
